FAERS Safety Report 8021339-7 (Version None)
Quarter: 2012Q1

REPORT INFORMATION
  Report Type: 
  Country: None (occurrence: None)
  Receive Date: 20120104
  Receipt Date: 20111227
  Transmission Date: 20120608
  Serious: Yes (Other)
  Sender: FDA-Public Use
  Company Number: US-BAYER-2011-050083

PATIENT
  Age: 16 Year
  Sex: Female
  Weight: 66.667 kg

DRUGS (5)
  1. YAZ [Suspect]
     Indication: CONTRACEPTION
     Dosage: UNK
     Dates: start: 20080627, end: 20091001
  2. PHENERGAN [Concomitant]
     Indication: ABDOMINAL PAIN
     Dosage: 25 MG, UNK
     Route: 042
     Dates: start: 20080607
  3. DILAUDID [Concomitant]
     Indication: ABDOMINAL PAIN
     Dosage: 1 MG, UNK
     Route: 042
     Dates: start: 20080607
  4. IRON [Concomitant]
     Route: 048
  5. M.V.I. [Concomitant]
     Route: 048

REACTIONS (7)
  - EMOTIONAL DISTRESS [None]
  - SCAR [None]
  - CHOLECYSTITIS CHRONIC [None]
  - BILIARY DYSKINESIA [None]
  - PAIN [None]
  - GALLBLADDER INJURY [None]
  - ANXIETY [None]
